FAERS Safety Report 7146425-5 (Version None)
Quarter: 2010Q4

REPORT INFORMATION
  Report Type: 
  Country: None (occurrence: None)
  Receive Date: 20101208
  Receipt Date: 20100831
  Transmission Date: 20110411
  Serious: No
  Sender: FDA-Public Use
  Company Number: US-BRISTOL-MYERS SQUIBB COMPANY-15262678

PATIENT
  Age: 67 Year
  Sex: Male
  Weight: 83 kg

DRUGS (3)
  1. PRAVASTATIN SODIUM [Suspect]
     Dosage: 40 MG Q PM
     Dates: end: 20100801
  2. ASPIRIN [Concomitant]
  3. VITAMINS [Concomitant]

REACTIONS (1)
  - MYALGIA [None]
